FAERS Safety Report 10577522 (Version 1)
Quarter: 2014Q4

REPORT INFORMATION
  Report Type: Spontaneous
  Country: GB (occurrence: GB)
  Receive Date: 20141111
  Receipt Date: 20141111
  Transmission Date: 20150529
  Serious: Yes (Other)
  Sender: FDA-Public Use
  Company Number: GB-TEVA-521133ISR

PATIENT
  Age: 74 Year
  Sex: Male
  Weight: 89.3 kg

DRUGS (10)
  1. LEUPRORELIN [Concomitant]
     Active Substance: LEUPROLIDE ACETATE
     Dates: start: 20140508, end: 20141023
  2. SILDENAFIL. [Concomitant]
     Active Substance: SILDENAFIL
     Dates: start: 20140717, end: 20140911
  3. CARVEDILOL. [Concomitant]
     Active Substance: CARVEDILOL
     Dates: start: 20140717, end: 20140911
  4. WARFARIN SODIUM. [Concomitant]
     Active Substance: WARFARIN SODIUM
     Dates: start: 20140717, end: 20140814
  5. BICALUTAMIDE. [Suspect]
     Active Substance: BICALUTAMIDE
     Dates: start: 20140724
  6. AMLODIPINE [Concomitant]
     Active Substance: AMLODIPINE BESYLATE
     Dates: start: 20140717, end: 20140911
  7. CANDESARTAN [Concomitant]
     Active Substance: CANDESARTAN
     Dates: start: 20140717, end: 20140814
  8. SIMVASTATIN. [Concomitant]
     Active Substance: SIMVASTATIN
     Dates: start: 20140717, end: 20140911
  9. BETAMETHASONE VALERATE. [Concomitant]
     Active Substance: BETAMETHASONE VALERATE
     Dates: start: 20140818, end: 20140901
  10. LANSOPRAZOLE. [Concomitant]
     Active Substance: LANSOPRAZOLE
     Dates: start: 20140717, end: 20140911

REACTIONS (2)
  - Aggression [Recovered/Resolved]
  - Mood swings [Recovered/Resolved]

NARRATIVE: CASE EVENT DATE: 20140821
